FAERS Safety Report 26155241 (Version 1)
Quarter: 2025Q4

REPORT INFORMATION
  Report Type: Spontaneous
  Country: US (occurrence: US)
  Receive Date: 20251215
  Receipt Date: 20251215
  Transmission Date: 20260118
  Serious: Yes (Hospitalization, Other)
  Sender: AMNEAL
  Company Number: US-AMNEAL PHARMACEUTICALS-2025-AMRX-04778

PATIENT
  Age: 47 Year
  Sex: Female

DRUGS (1)
  1. SOTALOL HYDROCHLORIDE [Suspect]
     Active Substance: SOTALOL HYDROCHLORIDE
     Indication: Product used for unknown indication
     Dosage: 3.6 GRAM
     Route: 048

REACTIONS (3)
  - Cardiogenic shock [Recovering/Resolving]
  - Toxicity to various agents [Recovering/Resolving]
  - Overdose [Unknown]
